FAERS Safety Report 9439101 (Version 1)
Quarter: 2013Q3

REPORT INFORMATION
  Report Type: Report from Study
  Country: US (occurrence: US)
  Receive Date: 20130802
  Receipt Date: 20130802
  Transmission Date: 20140515
  Serious: Yes (Hospitalization, Other)
  Sender: FDA-Public Use
  Company Number: US-ABBOTT-13P-163-1124749-00

PATIENT
  Age: 31 Year
  Sex: Female

DRUGS (4)
  1. HUMIRA [Suspect]
     Indication: COLITIS ULCERATIVE
     Dates: start: 201306, end: 20130703
  2. PREDNISONE [Concomitant]
     Indication: COLITIS ULCERATIVE
  3. DILAUDID [Concomitant]
     Indication: PAIN
  4. ZOFRAN [Concomitant]
     Indication: NAUSEA

REACTIONS (8)
  - Malnutrition [Unknown]
  - Colitis ulcerative [Not Recovered/Not Resolved]
  - Abdominal pain [Unknown]
  - Diarrhoea [Unknown]
  - Drug ineffective [Unknown]
  - Colitis ulcerative [Not Recovered/Not Resolved]
  - Colitis ulcerative [Unknown]
  - Drug ineffective [Unknown]
